FAERS Safety Report 7198338-0 (Version None)
Quarter: 2010Q4

REPORT INFORMATION
  Report Type: 
  Country: None (occurrence: None)
  Receive Date: 20101227
  Receipt Date: 20101216
  Transmission Date: 20110411
  Serious: Yes (Death, Life-Threatening, Hospitalization)
  Sender: FDA-Public Use
  Company Number: FR-JNJFOC-20080900615

PATIENT
  Sex: Male
  Weight: 3.33 kg

DRUGS (10)
  1. REMICADE [Suspect]
     Indication: DRUG EXPOSURE DURING PREGNANCY
     Route: 050
  2. REMICADE [Suspect]
     Route: 050
  3. REMICADE [Suspect]
     Route: 050
  4. REMICADE [Suspect]
     Route: 050
  5. MESALAZINE [Concomitant]
  6. AZATHIOPRINE [Concomitant]
  7. PREDNISOLONE [Concomitant]
  8. CALCIUM FOLINATE [Concomitant]
  9. FERROUS SULFATE [Concomitant]
  10. ERYTHROMYCIN [Concomitant]

REACTIONS (5)
  - ESCHERICHIA INFECTION [None]
  - HYPOXIA [None]
  - MATERNAL DRUGS AFFECTING FOETUS [None]
  - NEONATAL ASPIRATION [None]
  - PULMONARY HYPERTENSION [None]
